FAERS Safety Report 18198145 (Version 1)
Quarter: 2020Q3

REPORT INFORMATION
  Report Type: Spontaneous
  Country: SK (occurrence: SK)
  Receive Date: 20200826
  Receipt Date: 20200826
  Transmission Date: 20201103
  Serious: Yes (Hospitalization)
  Sender: FDA-Public Use
  Company Number: SK-PFIZER INC-2020329044

PATIENT
  Sex: Female
  Weight: 43 kg

DRUGS (1)
  1. DALACIN [Suspect]
     Active Substance: CLINDAMYCIN
     Indication: TOOTH DISORDER
     Dosage: 300 MG, 3X/DAY
     Route: 048
     Dates: start: 20200616, end: 20200625

REACTIONS (2)
  - Face oedema [Recovered/Resolved]
  - Erythema multiforme [Recovered/Resolved]

NARRATIVE: CASE EVENT DATE: 20200626
